FAERS Safety Report 8490224-9 (Version None)
Quarter: 2012Q3

REPORT INFORMATION
  Report Type: 
  Country: None (occurrence: None)
  Receive Date: 20120705
  Receipt Date: 20111025
  Transmission Date: 20120928
  Serious: No
  Sender: FDA-Public Use
  Company Number: US-BAUSCH-2011BL007329

PATIENT
  Age: 36 Year
  Sex: Male

DRUGS (3)
  1. OPCON-A [Suspect]
     Indication: EYE IRRITATION
     Route: 047
     Dates: start: 20111016, end: 20111016
  2. OPCON-A [Suspect]
     Indication: PHOTOPHOBIA
     Route: 047
     Dates: start: 20111016, end: 20111016
  3. REFRESH [Concomitant]

REACTIONS (3)
  - INSTILLATION SITE PAIN [None]
  - EYE PAIN [None]
  - OFF LABEL USE [None]
